FAERS Safety Report 25350699 (Version 1)
Quarter: 2025Q2

REPORT INFORMATION
  Report Type: Spontaneous
  Country: LB (occurrence: LB)
  Receive Date: 20250523
  Receipt Date: 20250523
  Transmission Date: 20250717
  Serious: Yes (Other)
  Sender: AMNEAL
  Company Number: LB-AMNEAL PHARMACEUTICALS-2025-AMRX-01955

PATIENT
  Age: 62 Year
  Sex: Male

DRUGS (1)
  1. BACLOFEN [Suspect]
     Active Substance: BACLOFEN
     Indication: Gastrooesophageal reflux disease
     Dosage: 10 MILLIGRAM, 3 /DAY
     Route: 065

REACTIONS (1)
  - Pancreatitis acute [Unknown]
